FAERS Safety Report 7577561-7 (Version None)
Quarter: 2011Q2

REPORT INFORMATION
  Report Type: 
  Country: None (occurrence: None)
  Receive Date: 20110628
  Receipt Date: 20110614
  Transmission Date: 20111010
  Serious: No
  Sender: FDA-Public Use
  Company Number: US-B.I. PHARMACEUTICALS,INC./RIDGEFIELD-2011-BP-01721BP

PATIENT
  Sex: Male

DRUGS (2)
  1. MIRAPEX [Suspect]
     Indication: RESTLESS LEGS SYNDROME
  2. MIRAPEX [Suspect]
     Indication: SLEEP DISORDER
     Dates: start: 20080801

REACTIONS (5)
  - PAIN [None]
  - PATHOLOGICAL GAMBLING [None]
  - OBSESSIVE-COMPULSIVE DISORDER [None]
  - HYPERSEXUALITY [None]
  - EMOTIONAL DISTRESS [None]
